FAERS Safety Report 10011879 (Version 1)
Quarter: 2014Q1

REPORT INFORMATION
  Report Type: Spontaneous
  Country: US (occurrence: US)
  Receive Date: 20140314
  Receipt Date: 20140314
  Transmission Date: 20141002
  Serious: No
  Sender: FDA-Public Use
  Company Number: US-B.I. PHARMACEUTICALS,INC./RIDGEFIELD-2014-BI-10128BP

PATIENT
  Age: 79 Year
  Sex: Male

DRUGS (6)
  1. SPIRIVA [Suspect]
     Indication: CHRONIC OBSTRUCTIVE PULMONARY DISEASE
     Dosage: 18 MCG
     Route: 055
     Dates: start: 20140302, end: 20140305
  2. AMIODARONE [Concomitant]
     Dosage: 200 MG
     Route: 048
  3. COREG [Concomitant]
     Dosage: 12.5 MG
     Route: 048
  4. LASIX [Concomitant]
     Dosage: 160 MG
     Route: 048
  5. LISINOPRIL [Concomitant]
     Dosage: 10 MG
     Route: 048
  6. SPIRONOLACTONE [Concomitant]
     Dosage: 25 MG
     Route: 048

REACTIONS (2)
  - Nausea [Recovered/Resolved]
  - Retching [Recovered/Resolved]
